FAERS Safety Report 17098357 (Version 1)
Quarter: 2019Q4

REPORT INFORMATION
  Report Type: Spontaneous
  Country: US (occurrence: US)
  Receive Date: 20191129
  Receipt Date: 20191129
  Transmission Date: 20200122
  Serious: Yes (Hospitalization)
  Sender: FDA-Public Use
  Company Number: None

PATIENT

DRUGS (1)
  1. COSENTYX [Suspect]
     Active Substance: SECUKINUMAB
     Indication: PSORIASIS
     Dosage: ?          OTHER FREQUENCY:WEEKLY FOR 5 WEEKS;?
     Route: 058
     Dates: start: 20191031

REACTIONS (3)
  - Pancreatitis [None]
  - Decreased appetite [None]
  - Dry mouth [None]
